FAERS Safety Report 20460769 (Version 1)
Quarter: 2022Q1

REPORT INFORMATION
  Report Type: Spontaneous
  Country: RU (occurrence: RU)
  Receive Date: 20220211
  Receipt Date: 20220211
  Transmission Date: 20220423
  Serious: Yes (Hospitalization)
  Sender: FDA-Public Use
  Company Number: RU-GLAXOSMITHKLINE-RU2022EME021133

PATIENT
  Sex: Female

DRUGS (2)
  1. ACYCLOVIR [Suspect]
     Active Substance: ACYCLOVIR
     Indication: Epstein-Barr virus infection
     Dosage: 100 MG, QID
     Dates: start: 20210501, end: 20210504
  2. AMOXICILLIN\CLAVULANATE POTASSIUM [Suspect]
     Active Substance: AMOXICILLIN\CLAVULANATE POTASSIUM
     Indication: Epstein-Barr virus infection
     Dosage: UNK
     Dates: start: 20210501, end: 20210507

REACTIONS (3)
  - Neoplasm progression [Unknown]
  - Swelling face [Unknown]
  - Parotid gland enlargement [Unknown]
